FAERS Safety Report 14344427 (Version 1)
Quarter: 2018Q1

REPORT INFORMATION
  Report Type: Spontaneous
  Country: US (occurrence: US)
  Receive Date: 20180102
  Receipt Date: 20180102
  Transmission Date: 20180509
  Serious: No
  Sender: FDA-Public Use
  Company Number: US-PURDUE-USA-2016-0135566

PATIENT
  Age: 59 Year
  Sex: Male

DRUGS (2)
  1. MORPHINE SULFATE EXTENDED-RELEASE TABLETS (RHODES 74-769, 74-862) [Suspect]
     Active Substance: MORPHINE SULFATE
     Indication: PAIN MANAGEMENT
     Dosage: 15 MG, SINGLE
     Route: 048
     Dates: start: 20170104, end: 20170104
  2. MORPHINE SULFATE EXTENDED-RELEASE TABLETS (RHODES 74-769, 74-862) [Suspect]
     Active Substance: MORPHINE SULFATE
     Dosage: 60 MG, Q12H
     Route: 048
     Dates: start: 2016, end: 20161217

REACTIONS (9)
  - Abdominal pain upper [Recovered/Resolved]
  - Dyspnoea [Recovered/Resolved]
  - Nausea [Recovered/Resolved]
  - Wrong technique in product usage process [Recovered/Resolved]
  - Chest pain [Unknown]
  - Hyperhidrosis [Recovered/Resolved]
  - Intentional product use issue [Recovered/Resolved]
  - Headache [Recovered/Resolved]
  - Drug effect increased [Recovered/Resolved]

NARRATIVE: CASE EVENT DATE: 2016
